FAERS Safety Report 24619098 (Version 1)
Quarter: 2024Q4

REPORT INFORMATION
  Report Type: Spontaneous
  Country: US (occurrence: US)
  Receive Date: 20241114
  Receipt Date: 20241114
  Transmission Date: 20250115
  Serious: No
  Sender: CURRAX PHARMACEUTICALS
  Company Number: US-CURRAX PHARMACEUTICALS LLC-US-2023CUR004289

PATIENT
  Sex: Female

DRUGS (1)
  1. CONTRAVE [Suspect]
     Active Substance: BUPROPION HYDROCHLORIDE\NALTREXONE HYDROCHLORIDE
     Indication: Product used for unknown indication
     Dosage: STRENGTH 8/90MG, UNKNOWN DOSE AND FREQUENCY
     Route: 048

REACTIONS (5)
  - Rash [Unknown]
  - Mood swings [Unknown]
  - Palpitations [Unknown]
  - Insomnia [Unknown]
  - Disturbance in attention [Unknown]
